FAERS Safety Report 6256659-X (Version None)
Quarter: 2009Q2

REPORT INFORMATION
  Report Type: 
  Country: None (occurrence: None)
  Receive Date: 20090630
  Receipt Date: 20090630
  Transmission Date: 20091009
  Serious: No
  Sender: FDA-Public Use
  Company Number: None

PATIENT
  Age: 60 Year
  Sex: Female
  Weight: 79.3795 kg

DRUGS (1)
  1. ACTONEL [Suspect]
     Dosage: 150MG ONCE A MONTH

REACTIONS (3)
  - BACK PAIN [None]
  - BONE PAIN [None]
  - PAIN IN EXTREMITY [None]
